FAERS Safety Report 19393295 (Version 2)
Quarter: 2021Q2

REPORT INFORMATION
  Report Type: Report from Study
  Country: US (occurrence: US)
  Receive Date: 20210609
  Receipt Date: 20210623
  Transmission Date: 20210717
  Serious: Yes (Hospitalization)
  Sender: FDA-Public Use
  Company Number: US-ROCHE-2840288

PATIENT
  Age: 69 Year
  Sex: Female
  Weight: 93.2 kg

DRUGS (9)
  1. VALACYCLOVIR [Concomitant]
     Active Substance: VALACYCLOVIR HYDROCHLORIDE
     Route: 048
     Dates: start: 20210407
  2. DOXORUBICIN [Suspect]
     Active Substance: DOXORUBICIN
     Indication: B-CELL LYMPHOMA
     Dosage: DATE OF MOST RECENT DOSE (108 MG) OF STUDY DRUG PRIOR TO SAE : 18/MAY/2021
     Route: 042
     Dates: start: 20210406
  3. AMITRIPTYLINE [Concomitant]
     Active Substance: AMITRIPTYLINE
     Route: 048
     Dates: start: 2011
  4. MOSUNETUZUMAB. [Suspect]
     Active Substance: MOSUNETUZUMAB
     Indication: B-CELL LYMPHOMA
     Dosage: DOSE LAST STUDY DRUG ADMINISTRATION PRIOR TO SAE: 30MG ON 18/MAY/2021
     Route: 042
     Dates: start: 20210406
  5. POLATUZUMAB VEDOTIN. [Suspect]
     Active Substance: POLATUZUMAB VEDOTIN
     Indication: B-CELL LYMPHOMA
     Dosage: DATE OF MOST RECENT DOSE (176 MG) OF STUDY DRUG PRIOR TO SAE : 18/MAY/2021
     Route: 042
     Dates: start: 20210406
  6. PREDNISOLONE. [Suspect]
     Active Substance: PREDNISOLONE
     Indication: B-CELL LYMPHOMA
     Dosage: DATE OF MOST RECENT DOSE (100 MG) OF STUDY DRUG PRIOR TO SAE : 22/MAY/2021
     Route: 048
     Dates: start: 20210406
  7. CYCLOPHOSPHAMIDE. [Suspect]
     Active Substance: CYCLOPHOSPHAMIDE
     Indication: B-CELL LYMPHOMA
     Dosage: DATE OF MOST RECENT DOSE (1612.5 MG) OF STUDY DRUG PRIOR TO SAE : 18/MAY/2021
     Route: 042
     Dates: start: 20210406
  8. ATORVASTATIN [Concomitant]
     Active Substance: ATORVASTATIN
     Route: 048
     Dates: start: 2011
  9. PANTOPRAZOLE [Concomitant]
     Active Substance: PANTOPRAZOLE
     Route: 048
     Dates: start: 20210407

REACTIONS (1)
  - Syncope [Recovered/Resolved]

NARRATIVE: CASE EVENT DATE: 20210527
